FAERS Safety Report 5872006-7 (Version None)
Quarter: 2008Q3

REPORT INFORMATION
  Report Type: 
  Country: None (occurrence: None)
  Receive Date: 20080904
  Receipt Date: 20080904
  Transmission Date: 20090109
  Serious: Yes (Other)
  Sender: FDA-Public Use
  Company Number: None

PATIENT
  Sex: Male

DRUGS (1)
  1. CHANTIX [Suspect]
     Indication: SMOKING CESSATION THERAPY
     Dosage: ?DAILY PO
     Route: 048
     Dates: start: 20071201, end: 20071210

REACTIONS (4)
  - AGGRESSION [None]
  - ALCOHOL USE [None]
  - AMNESIA [None]
  - ANGER [None]
